FAERS Safety Report 8555752-6 (Version None)
Quarter: 2012Q3

REPORT INFORMATION
  Report Type: 
  Country: None (occurrence: None)
  Receive Date: 20120801
  Receipt Date: 20120723
  Transmission Date: 20120928
  Serious: No
  Sender: FDA-Public Use
  Company Number: US-009507513-1207USA010691

PATIENT

DRUGS (3)
  1. ATORVASTATIN CALCIUM [Suspect]
  2. ZOCOR [Suspect]
  3. LIPITOR [Suspect]

REACTIONS (3)
  - FEELING HOT [None]
  - DRUG DISPENSING ERROR [None]
  - FLUSHING [None]
